FAERS Safety Report 6203633-5 (Version None)
Quarter: 2009Q2

REPORT INFORMATION
  Report Type: 
  Country: None (occurrence: None)
  Receive Date: 20090521
  Receipt Date: 20090509
  Transmission Date: 20091009
  Serious: Yes (Other)
  Sender: FDA-Public Use
  Company Number: 2009S1008479

PATIENT
  Age: 29 Year
  Sex: Female
  Weight: 74.8435 kg

DRUGS (5)
  1. TOPIRAMATE [Suspect]
     Indication: CONVULSION
     Dosage: 100 MG; TWICE A DAY; ORAL
     Route: 048
     Dates: start: 20090401, end: 20090507
  2. KEPPRA [Concomitant]
  3. CLONAZEPAM [Concomitant]
  4. ADVAIR HFA [Concomitant]
  5. RHINOCORT [Concomitant]

REACTIONS (6)
  - CLUMSINESS [None]
  - COMPLEX PARTIAL SEIZURES [None]
  - DRUG EFFECT DECREASED [None]
  - IMPAIRED DRIVING ABILITY [None]
  - POSTICTAL STATE [None]
  - PRODUCT SUBSTITUTION ISSUE [None]
